FAERS Safety Report 19708703 (Version 1)
Quarter: 2021Q3

REPORT INFORMATION
  Report Type: Spontaneous
  Country: US (occurrence: US)
  Receive Date: 20210816
  Receipt Date: 20210816
  Transmission Date: 20211014
  Serious: No
  Sender: FDA-Public Use
  Company Number: None

PATIENT
  Age: 86 Year
  Sex: Male

DRUGS (1)
  1. ROCURONIUM BROMIDE (ROCURONIUM BR 10MG/ML INJ, SYRINGE, 5ML) [Suspect]
     Active Substance: ROCURONIUM BROMIDE
     Indication: INDUCTION OF ANAESTHESIA
     Dates: start: 20210201, end: 20210201

REACTIONS (3)
  - Hypotension [None]
  - Rash [None]
  - Anaphylactoid reaction [None]

NARRATIVE: CASE EVENT DATE: 20210201
